FAERS Safety Report 4462270-3 (Version None)
Quarter: 2004Q3

REPORT INFORMATION
  Report Type: 
  Country: None (occurrence: None)
  Receive Date: 20040928
  Receipt Date: 20040904
  Transmission Date: 20050211
  Serious: Yes (Hospitalization)
  Sender: FDA-Public Use
  Company Number: DSA_24929_2004

PATIENT
  Age: 93 Year
  Sex: Female

DRUGS (3)
  1. NIFEDIPINE [Suspect]
     Indication: HYPERTENSION
     Dosage: 10 MG ONCE SL
     Route: 060
  2. NIFEDIPINE [Suspect]
     Indication: HYPERTENSION
     Dosage: 10 MG ONCE SL
     Route: 060
  3. NIFEDIPINE [Suspect]
     Indication: HYPERTENSION
     Dosage: 10 MG ONCE SL
     Route: 060

REACTIONS (6)
  - ACUTE PULMONARY OEDEMA [None]
  - CARDIOMEGALY [None]
  - HYPOTENSION [None]
  - LEFT VENTRICULAR FAILURE [None]
  - LETHARGY [None]
  - PALLOR [None]
